FAERS Safety Report 12715609 (Version 4)
Quarter: 2017Q3

REPORT INFORMATION
  Report Type: Spontaneous
  Country: US (occurrence: US)
  Receive Date: 20160906
  Receipt Date: 20170901
  Transmission Date: 20171127
  Serious: No
  Sender: FDA-Public Use
  Company Number: US-TEVA-680054USA

PATIENT
  Age: 40 Year
  Sex: Female

DRUGS (5)
  1. DIAZEPAM. [Concomitant]
     Active Substance: DIAZEPAM
  2. ABILIFY [Concomitant]
     Active Substance: ARIPIPRAZOLE
  3. COPAXONE [Suspect]
     Active Substance: GLATIRAMER ACETATE
     Indication: MULTIPLE SCLEROSIS
     Route: 058
     Dates: start: 20130110
  4. RISPERDAL [Concomitant]
     Active Substance: RISPERIDONE
  5. ZOLOFT [Concomitant]
     Active Substance: SERTRALINE HYDROCHLORIDE

REACTIONS (5)
  - Fall [Recovered/Resolved]
  - Muscle spasms [Not Recovered/Not Resolved]
  - Memory impairment [Unknown]
  - Injection site erythema [Unknown]
  - Ligament sprain [Not Recovered/Not Resolved]

NARRATIVE: CASE EVENT DATE: 201301
